FAERS Safety Report 23561394 (Version 1)
Quarter: 2024Q1

REPORT INFORMATION
  Report Type: Spontaneous
  Country: US (occurrence: None)
  Receive Date: 20240224
  Receipt Date: 20240224
  Transmission Date: 20240410
  Serious: No
  Sender: FDA-Public Use
  Company Number: 2024A027057

PATIENT
  Sex: Male

DRUGS (1)
  1. FARXIGA [Suspect]
     Active Substance: DAPAGLIFLOZIN PROPANEDIOL
     Route: 048

REACTIONS (8)
  - Erythema [Unknown]
  - Drug hypersensitivity [Unknown]
  - Urticaria [Unknown]
  - Pruritus [Unknown]
  - Rash [Unknown]
  - Skin exfoliation [Unknown]
  - Haemorrhage [Unknown]
  - Sleep disorder [Unknown]
